APPROVED DRUG PRODUCT: HYDROCHLOROTHIAZIDE
Active Ingredient: HYDROCHLOROTHIAZIDE
Strength: 12.5MG
Dosage Form/Route: CAPSULE;ORAL
Application: A200645 | Product #001
Applicant: ALEMBIC PHARMACEUTICALS LTD
Approved: Nov 30, 2010 | RLD: No | RS: No | Type: DISCN